FAERS Safety Report 7075207-8 (Version None)
Quarter: 2010Q4

REPORT INFORMATION
  Report Type: 
  Country: None (occurrence: None)
  Receive Date: 20101030
  Receipt Date: 20100419
  Transmission Date: 20110411
  Serious: No
  Sender: FDA-Public Use
  Company Number: US-WYE-H14785410

PATIENT
  Age: 18 Year
  Sex: Female
  Weight: 99.88 kg

DRUGS (3)
  1. ALAVERT [Suspect]
     Indication: HYPERSENSITIVITY
     Route: 048
     Dates: start: 20100418, end: 20100419
  2. SALBUTAMOL [Concomitant]
  3. NAPROXEN [Concomitant]

REACTIONS (4)
  - CHEST DISCOMFORT [None]
  - DRY MOUTH [None]
  - HEART RATE INCREASED [None]
  - NASAL CONGESTION [None]
